FAERS Safety Report 9322361 (Version 2)
Quarter: 2013Q2

REPORT INFORMATION
  Report Type: Spontaneous
  Country: GB (occurrence: GB)
  Receive Date: 20130531
  Receipt Date: 20130613
  Transmission Date: 20140414
  Serious: Yes (Disabling)
  Sender: FDA-Public Use
  Company Number: GB-ABBOTT-13X-167-1094671-00

PATIENT
  Sex: Male

DRUGS (7)
  1. DEPAKOTE [Suspect]
     Indication: PRODUCT USED FOR UNKNOWN INDICATION
     Dosage: 1500 MILLIGRAM(S);DAILY
     Route: 065
     Dates: end: 201305
  2. DEPAKOTE [Suspect]
     Dosage: 500 MILLIGRAM(S);DAILY
     Route: 065
  3. DEPAKOTE [Suspect]
     Dosage: 1000 MILLIGRAM(S);DAILY
     Route: 065
  4. LAMOTRIGINE [Suspect]
     Indication: PRODUCT USED FOR UNKNOWN INDICATION
     Dosage: 22 MILLIGRAM(S); DAILY
     Route: 065
     Dates: end: 20130501
  5. VENLAFAXINE [Concomitant]
     Indication: PRODUCT USED FOR UNKNOWN INDICATION
  6. MIRTAZAPINE [Concomitant]
     Indication: PRODUCT USED FOR UNKNOWN INDICATION
  7. AMISULPRIDE [Concomitant]
     Indication: PRODUCT USED FOR UNKNOWN INDICATION

REACTIONS (5)
  - Chest pain [Recovered/Resolved]
  - Sensation of heaviness [Recovered/Resolved]
  - Palpitations [Recovered/Resolved]
  - Restlessness [Recovered/Resolved]
  - Rash [Recovered/Resolved]
